FAERS Safety Report 6536445-3 (Version None)
Quarter: 2010Q1

REPORT INFORMATION
  Report Type: 
  Country: None (occurrence: None)
  Receive Date: 20100113
  Receipt Date: 20100107
  Transmission Date: 20100710
  Serious: Yes (Hospitalization, Other)
  Sender: FDA-Public Use
  Company Number: US-MERCK-0912USA01637

PATIENT
  Age: 86 Year
  Sex: Male

DRUGS (1)
  1. JANUVIA [Suspect]
     Indication: TYPE 2 DIABETES MELLITUS
     Route: 048
     Dates: start: 20090101

REACTIONS (4)
  - ADVERSE EVENT [None]
  - MULTIPLE MYELOMA [None]
  - PANCREATITIS [None]
  - RENAL IMPAIRMENT [None]
